FAERS Safety Report 23576607 (Version 2)
Quarter: 2024Q1

REPORT INFORMATION
  Report Type: Spontaneous
  Country: US (occurrence: US)
  Receive Date: 20240228
  Receipt Date: 20240310
  Transmission Date: 20240409
  Serious: No
  Sender: FDA-Public Use
  Company Number: US-ABBVIE-5655948

PATIENT
  Age: 67 Year
  Sex: Female

DRUGS (1)
  1. HUMIRA [Suspect]
     Active Substance: ADALIMUMAB
     Indication: Colitis microscopic
     Dosage: FORM STRENGTH: 40 MILLIGRAM
     Route: 058

REACTIONS (6)
  - Off label use [Unknown]
  - Injection site haemorrhage [Unknown]
  - Device use error [Recovered/Resolved]
  - Contusion [Unknown]
  - Influenza [Unknown]
  - Injection site discharge [Recovered/Resolved]

NARRATIVE: CASE EVENT DATE: 20240208
